FAERS Safety Report 9255545 (Version 2)
Quarter: 2013Q2

REPORT INFORMATION
  Report Type: Spontaneous
  Country: DE (occurrence: None)
  Receive Date: 20130418
  Receipt Date: 20130516
  Transmission Date: 20140414
  Serious: Yes (Other)
  Sender: FDA-Public Use
  Company Number: 1304-505

PATIENT
  Age: 71 Year
  Sex: Male

DRUGS (2)
  1. EYLEA [Suspect]
     Indication: AGE-RELATED MACULAR DEGENERATION
     Route: 031
     Dates: start: 20130402, end: 20130402
  2. CRAVIT  (LEVOFLOXACIN) [Concomitant]

REACTIONS (1)
  - Punctate keratitis [None]
